FAERS Safety Report 8894729 (Version 1)
Quarter: 2012Q4

REPORT INFORMATION
  Report Type: 
  Country: US (occurrence: US)
  Receive Date: 20121107
  Receipt Date: 20121107
  Transmission Date: 20130627
  Serious: Yes (Hospitalization)
  Sender: FDA-Public Use
  Company Number: US-US-EMD SERONO, INC.-7171806

PATIENT
  Sex: Female

DRUGS (2)
  1. REBIF [Suspect]
     Indication: MULTIPLE SCLEROSIS
     Route: 058
     Dates: start: 20040319
  2. REBIF [Suspect]
     Route: 058

REACTIONS (4)
  - Hip fracture [Unknown]
  - Fall [Unknown]
  - Multiple sclerosis relapse [Unknown]
  - Liver function test abnormal [Unknown]
